FAERS Safety Report 5889209-8 (Version None)
Quarter: 2008Q3

REPORT INFORMATION
  Report Type: 
  Country: None (occurrence: None)
  Receive Date: 20080919
  Receipt Date: 20080904
  Transmission Date: 20090109
  Serious: Yes (Hospitalization)
  Sender: FDA-Public Use
  Company Number: AU-ELI_LILLY_AND_COMPANY-AU200809001344

PATIENT
  Age: 16 Year
  Sex: Female

DRUGS (4)
  1. FLUOXETINE [Suspect]
     Indication: ANXIETY
     Dosage: 20 MG, DAILY (1/D)
     Route: 048
     Dates: start: 20070101, end: 20070101
  2. FLUOXETINE [Suspect]
     Dosage: 80 MG, DAILY (1/D)
     Route: 048
     Dates: start: 20070101, end: 20070101
  3. ZOLOFT [Concomitant]
     Dosage: UNK, UNK
     Dates: start: 20071001, end: 20070101
  4. EUCALYPTUS OIL [Concomitant]
     Dosage: 200 ML, UNK
     Dates: start: 20070101

REACTIONS (16)
  - ANXIETY [None]
  - BLOOD PRESSURE INCREASED [None]
  - DIARRHOEA [None]
  - HEADACHE [None]
  - HYPERHIDROSIS [None]
  - HYPERTENSION [None]
  - MENORRHAGIA [None]
  - NAUSEA [None]
  - OVERDOSE [None]
  - POLYCYSTIC OVARIES [None]
  - PSYCHOTIC DISORDER [None]
  - SEROTONIN SYNDROME [None]
  - SLEEP DISORDER [None]
  - SLEEP TERROR [None]
  - SUICIDAL BEHAVIOUR [None]
  - TREMOR [None]
